FAERS Safety Report 20472098 (Version 1)
Quarter: 2022Q1

REPORT INFORMATION
  Report Type: Spontaneous
  Country: US (occurrence: US)
  Receive Date: 20220214
  Receipt Date: 20220214
  Transmission Date: 20220423
  Serious: Yes (Congenital Anomaly)
  Sender: FDA-Public Use
  Company Number: US-MALLINCKRODT-T202200603

PATIENT
  Sex: Female

DRUGS (7)
  1. INOMAX [Suspect]
     Active Substance: NITRIC OXIDE
     Indication: Pulmonary hypertension
     Dosage: UNK (INHALATION), 20PPM
     Route: 055
  2. DOBUTAMINE [Concomitant]
     Active Substance: DOBUTAMINE HYDROCHLORIDE
     Indication: Cardiac output decreased
     Dosage: UNK
     Route: 041
  3. DOBUTAMINE [Concomitant]
     Active Substance: DOBUTAMINE HYDROCHLORIDE
     Indication: Affect lability
  4. DOPAMINE [Concomitant]
     Active Substance: DOPAMINE HYDROCHLORIDE
     Indication: Cardiac output decreased
     Dosage: UNK
     Route: 041
  5. DOPAMINE [Concomitant]
     Active Substance: DOPAMINE HYDROCHLORIDE
     Indication: Affect lability
  6. MILRINONE [Concomitant]
     Active Substance: MILRINONE
     Indication: Cardiac output decreased
     Dosage: UNK
     Route: 041
  7. MILRINONE [Concomitant]
     Active Substance: MILRINONE
     Indication: Affect lability

REACTIONS (1)
  - Cor triatriatum [Recovering/Resolving]
